FAERS Safety Report 15100935 (Version 1)
Quarter: 2018Q3

REPORT INFORMATION
  Report Type: Spontaneous
  Country: US (occurrence: US)
  Receive Date: 20180703
  Receipt Date: 20180703
  Transmission Date: 20181010
  Serious: No
  Sender: FDA-Public Use
  Company Number: US-PFIZER INC-2018267244

PATIENT
  Age: 60 Year
  Sex: Female

DRUGS (7)
  1. NEURONTIN [Suspect]
     Active Substance: GABAPENTIN
     Indication: NAUSEA
  2. NEURONTIN [Suspect]
     Active Substance: GABAPENTIN
     Indication: DYSPNOEA
  3. NEURONTIN [Suspect]
     Active Substance: GABAPENTIN
     Indication: MUSCLE SPASMS
  4. NEURONTIN [Suspect]
     Active Substance: GABAPENTIN
     Indication: HEADACHE
  5. NEURONTIN [Suspect]
     Active Substance: GABAPENTIN
     Indication: PERIPHERAL SWELLING
     Dosage: UNK
  6. NEURONTIN [Suspect]
     Active Substance: GABAPENTIN
     Indication: PAIN IN EXTREMITY
  7. NEURONTIN [Suspect]
     Active Substance: GABAPENTIN
     Indication: DIZZINESS

REACTIONS (2)
  - Product use in unapproved indication [Unknown]
  - Drug effective for unapproved indication [Unknown]
